FAERS Safety Report 9431417 (Version 2)
Quarter: 2013Q3

REPORT INFORMATION
  Report Type: Spontaneous
  Country: US (occurrence: US)
  Receive Date: 20130730
  Receipt Date: 20130731
  Transmission Date: 20140515
  Serious: Yes (Other)
  Sender: FDA-Public Use
  Company Number: US-UCBSA-092553

PATIENT
  Age: 24 Year
  Sex: Female

DRUGS (5)
  1. KEPPRA [Suspect]
     Indication: CONVULSION
  2. NIFEDIPINE [Suspect]
     Indication: TOCOLYSIS
  3. BETAMETHASONE [Suspect]
  4. MAGNESIUM SULPHATE [Suspect]
     Indication: TOCOLYSIS
  5. MARIJUANA [Suspect]

REACTIONS (4)
  - Premature delivery [Unknown]
  - Polyhydramnios [Unknown]
  - Convulsion [Unknown]
  - Pregnancy [Recovered/Resolved]
